FAERS Safety Report 24229275 (Version 4)
Quarter: 2025Q1

REPORT INFORMATION
  Report Type: Spontaneous
  Country: US (occurrence: US)
  Receive Date: 20240820
  Receipt Date: 20250222
  Transmission Date: 20250409
  Serious: No
  Sender: SANOFI AVENTIS
  Company Number: US-SA-SAC20240814001103

PATIENT
  Age: 1 Year
  Sex: Male

DRUGS (1)
  1. DUPIXENT [Suspect]
     Active Substance: DUPILUMAB
     Indication: Dermatitis atopic
     Dosage: 200 MG, Q4W
     Route: 058
     Dates: start: 202408

REACTIONS (5)
  - Wheezing [Unknown]
  - Constipation [Unknown]
  - Nasopharyngitis [Unknown]
  - Eye pruritus [Unknown]
  - Off label use of device [Unknown]

NARRATIVE: CASE EVENT DATE: 20240101
